FAERS Safety Report 6290691-5 (Version None)
Quarter: 2009Q3

REPORT INFORMATION
  Report Type: 
  Country: None (occurrence: None)
  Receive Date: 20090727
  Receipt Date: 20081119
  Transmission Date: 20100115
  Serious: Yes (Life-Threatening, Hospitalization)
  Sender: FDA-Public Use
  Company Number: OMPQ-PR-0811S-1026

PATIENT
  Age: 72 Year
  Sex: Female

DRUGS (1)
  1. OMNIPAQUE 300 [Suspect]
     Indication: CORONARY ARTERY DISEASE
     Dosage: 75 ML, SINGLE DOSE, I.A.
     Route: 014
     Dates: start: 20081107, end: 20081107

REACTIONS (1)
  - ANAPHYLACTOID REACTION [None]
